FAERS Safety Report 10069266 (Version 1)
Quarter: 2014Q2

REPORT INFORMATION
  Report Type: Spontaneous
  Country: US (occurrence: US)
  Receive Date: 20140409
  Receipt Date: 20140409
  Transmission Date: 20141212
  Serious: No
  Sender: FDA-Public Use
  Company Number: US-ASTELLAS-2014US001178

PATIENT
  Age: 41 Year
  Sex: Male

DRUGS (2)
  1. PROTOPIC [Suspect]
     Indication: PRODUCT USED FOR UNKNOWN INDICATION
     Dosage: UNK
     Route: 061
     Dates: start: 2013, end: 201401
  2. ALCOHOL [Suspect]
     Indication: PRODUCT USED FOR UNKNOWN INDICATION
     Dosage: UNK
     Route: 048
     Dates: end: 201401

REACTIONS (4)
  - Alcohol interaction [Unknown]
  - Flushing [Recovering/Resolving]
  - Temperature intolerance [Unknown]
  - Temperature intolerance [Unknown]
